FAERS Safety Report 10330737 (Version 1)
Quarter: 2014Q3

REPORT INFORMATION
  Report Type: Other
  Country: US (occurrence: US)
  Receive Date: 20140722
  Receipt Date: 20140722
  Transmission Date: 20150326
  Serious: Yes (Other)
  Sender: FDA-Public Use
  Company Number: US-SHIRE-US201404108

PATIENT
  Age: 12 Year
  Sex: Male

DRUGS (1)
  1. ELAPRASE [Suspect]
     Active Substance: IDURSULFASE
     Indication: MUCOPOLYSACCHARIDOSIS
     Dosage: 18 MG, 1X/WEEK
     Route: 041
     Dates: start: 20140702

REACTIONS (6)
  - Pyrexia [Recovering/Resolving]
  - Insomnia [Recovering/Resolving]
  - Musculoskeletal stiffness [Recovered/Resolved]
  - Convulsion [Recovered/Resolved]
  - Chills [Recovering/Resolving]
  - Viral infection [Recovering/Resolving]

NARRATIVE: CASE EVENT DATE: 20140711
